FAERS Safety Report 10061551 (Version 1)
Quarter: 2014Q2

REPORT INFORMATION
  Report Type: Spontaneous
  Country: US (occurrence: None)
  Receive Date: 20140404
  Receipt Date: 20140404
  Transmission Date: 20141212
  Serious: Yes (Other)
  Sender: FDA-Public Use
  Company Number: None

PATIENT
  Age: 80 Year
  Sex: Male
  Weight: 62.6 kg

DRUGS (15)
  1. METOPROLOL SUCCINATE [Suspect]
     Indication: CARDIAC DISORDER
     Dosage: 25 MGM 1/2 PILL ONCE A DAY WITH BREAKFAST.
     Dates: start: 20140101, end: 20140123
  2. METOPROLOL SUCCINATE [Suspect]
     Indication: HYPERTENSION
     Dosage: 25 MGM 1/2 PILL ONCE A DAY WITH BREAKFAST.
     Dates: start: 20140101, end: 20140123
  3. OLMESARTAN(BENICAR) [Concomitant]
  4. NIASPAN [Concomitant]
  5. ZOCAR [Concomitant]
  6. ASPIRIN [Concomitant]
  7. FOLIC ACID [Concomitant]
  8. CALCIUM [Concomitant]
  9. MULTIVITAMIN [Concomitant]
  10. MULTIVITAMIN [Concomitant]
  11. ASPIRIN [Concomitant]
  12. FOLIC ACID [Concomitant]
  13. CALCIUM [Concomitant]
  14. MULTIVITAMIN [Concomitant]
  15. VITAMIN D [Concomitant]

REACTIONS (2)
  - Heart rate increased [None]
  - Product quality issue [None]
